FAERS Safety Report 18091045 (Version 1)
Quarter: 2020Q3

REPORT INFORMATION
  Report Type: Spontaneous
  Country: US (occurrence: US)
  Receive Date: 20200729
  Receipt Date: 20200729
  Transmission Date: 20201103
  Serious: No
  Sender: FDA-Public Use
  Company Number: None

PATIENT
  Age: 42 Year
  Sex: Male

DRUGS (1)
  1. LITHIUM. [Suspect]
     Active Substance: LITHIUM
     Indication: MANIA
     Route: 048

REACTIONS (9)
  - Blood sodium decreased [None]
  - Leukocytosis [None]
  - Antipsychotic drug level increased [None]
  - Protein urine present [None]
  - Face oedema [None]
  - Blood urea increased [None]
  - Hyperkalaemia [None]
  - Blood pressure increased [None]
  - Red blood cells urine positive [None]

NARRATIVE: CASE EVENT DATE: 20200107
